FAERS Safety Report 10655478 (Version 1)
Quarter: 2014Q4

REPORT INFORMATION
  Report Type: Spontaneous
  Country: US (occurrence: US)
  Receive Date: 20141216
  Receipt Date: 20141216
  Transmission Date: 20150529
  Serious: No
  Sender: FDA-Public Use
  Company Number: US-009507513-1411USA002398

PATIENT
  Sex: Female

DRUGS (1)
  1. DR. SCHOLL^S BLISTER DEFENSE ANTI-FRICTION STICK [Suspect]
     Active Substance: ALLANTOIN
     Indication: PRODUCT USED FOR UNKNOWN INDICATION
     Dosage: UNK, UNKNOWN
     Route: 061

REACTIONS (1)
  - Therapeutic product ineffective [Unknown]
